FAERS Safety Report 24067800 (Version 1)
Quarter: 2024Q3

REPORT INFORMATION
  Report Type: Other
  Country: CN (occurrence: CN)
  Receive Date: 20240710
  Receipt Date: 20240710
  Transmission Date: 20241016
  Serious: Yes (Other)
  Sender: QILU PHARMACEUTICAL
  Company Number: CN-QILU PHARMACEUTICAL CO.LTD.-QLU-000104-2024

PATIENT
  Age: 69 Year
  Sex: Female
  Weight: 50 kg

DRUGS (3)
  1. OLANZAPINE [Suspect]
     Active Substance: OLANZAPINE
     Indication: Psychiatric symptom
     Dosage: 5 MG TWICE A DAY (BID)
     Route: 048
     Dates: start: 20240507, end: 20240622
  2. RISPERIDONE [Suspect]
     Active Substance: RISPERIDONE
     Indication: Psychiatric symptom
     Dosage: 1 MG THRICE A DAY
     Route: 048
     Dates: start: 20240507, end: 20240622
  3. LORAZEPAM [Suspect]
     Active Substance: LORAZEPAM
     Indication: Sleep disorder
     Dosage: 1 MG ONCE DAILY
     Route: 048
     Dates: start: 20240507, end: 20240622

REACTIONS (1)
  - Hypokalaemia [Unknown]

NARRATIVE: CASE EVENT DATE: 20240623
